FAERS Safety Report 6969214-0 (Version None)
Quarter: 2010Q3

REPORT INFORMATION
  Report Type: 
  Country: None (occurrence: None)
  Receive Date: 20100907
  Receipt Date: 20100903
  Transmission Date: 20110219
  Serious: Yes (Death, Other)
  Sender: FDA-Public Use
  Company Number: PHHY2010NO58017

PATIENT
  Sex: Male

DRUGS (2)
  1. CLOZAPINE [Suspect]
     Indication: SCHIZOPHRENIA
     Dosage: 300 MG, UNK
     Dates: start: 20070101
  2. ABILIFY [Suspect]
     Indication: SCHIZOPHRENIA
     Dosage: 15 MG, UNK
     Dates: start: 20070101

REACTIONS (3)
  - CARDIAC ARREST [None]
  - CHEST PAIN [None]
  - PULMONARY EMBOLISM [None]
